FAERS Safety Report 6289307-3 (Version None)
Quarter: 2009Q3

REPORT INFORMATION
  Report Type: 
  Country: None (occurrence: None)
  Receive Date: 20090730
  Receipt Date: 20090721
  Transmission Date: 20100115
  Serious: Yes (Hospitalization)
  Sender: FDA-Public Use
  Company Number: US-BIOGENIDEC-148303

PATIENT
  Age: 20 Year
  Sex: Female

DRUGS (2)
  1. AVONEX [Suspect]
     Indication: MULTIPLE SCLEROSIS
     Route: 030
     Dates: start: 19960704, end: 20030801
  2. AVONEX [Suspect]
     Route: 030
     Dates: start: 20030802

REACTIONS (8)
  - DYSPNOEA [None]
  - FORMICATION [None]
  - INFLUENZA LIKE ILLNESS [None]
  - INJECTION SITE FIBROSIS [None]
  - INSOMNIA [None]
  - MULTIPLE SCLEROSIS RELAPSE [None]
  - PRURITUS [None]
  - PULMONARY OEDEMA [None]
